FAERS Safety Report 4976989-9 (Version None)
Quarter: 2006Q2

REPORT INFORMATION
  Report Type: 
  Country: None (occurrence: None)
  Receive Date: 20060419
  Receipt Date: 20060327
  Transmission Date: 20061013
  Serious: Yes (Hospitalization)
  Sender: FDA-Public Use
  Company Number: IE-AMGEN-UK174078

PATIENT
  Age: 31 Year
  Sex: Female

DRUGS (5)
  1. NEULASTA [Suspect]
     Indication: CHEMOTHERAPY
     Route: 058
  2. DOXORUBICIN HCL [Concomitant]
     Route: 065
  3. BLEOMYCIN [Concomitant]
     Route: 065
  4. VINBLASTINE SULFATE [Concomitant]
     Route: 065
  5. DACARBAZINE [Concomitant]
     Route: 065

REACTIONS (4)
  - DYSPNOEA [None]
  - HYPERSENSITIVITY [None]
  - RASH [None]
  - SYNCOPE [None]
